FAERS Safety Report 21934423 (Version 1)
Quarter: 2023Q1

REPORT INFORMATION
  Report Type: Spontaneous
  Country: AT (occurrence: AT)
  Receive Date: 20230201
  Receipt Date: 20230201
  Transmission Date: 20230418
  Serious: Yes (Other)
  Sender: FDA-Public Use
  Company Number: AT-PFIZER INC-202200994474

PATIENT
  Age: 26 Year
  Sex: Female
  Weight: 104 kg

DRUGS (6)
  1. MEDROXYPROGESTERONE ACETATE [Suspect]
     Active Substance: MEDROXYPROGESTERONE ACETATE
     Indication: Contraception
     Dosage: 150 MG
     Route: 030
     Dates: start: 20220720
  2. MINERALS\VITAMINS [Concomitant]
     Active Substance: MINERALS\VITAMINS
     Indication: Supplementation therapy
     Dosage: 1 DF, 1X/DAY
     Dates: start: 20220511
  3. DOEDERLEIN [Concomitant]
     Indication: Vaginal infection
     Dosage: 1 TO 2 DF DAILY
     Dates: start: 20220511, end: 20221220
  4. LEVOTHYROXINE SODIUM\LIOTHYRONINE SODIUM [Concomitant]
     Active Substance: LEVOTHYROXINE SODIUM\LIOTHYRONINE SODIUM
     Indication: Hypothyroidism
     Dosage: 1 DF, 1X/DAY
     Dates: start: 20220101
  5. LEVOTHYROXINE SODIUM [Concomitant]
     Active Substance: LEVOTHYROXINE SODIUM
     Indication: Hypothyroidism
     Dosage: 75 UG, 1X/DAY
     Dates: start: 20221124
  6. MAGNESIUM CARBONATE\MAGNESIUM OXIDE [Concomitant]
     Active Substance: MAGNESIUM CARBONATE\MAGNESIUM OXIDE
     Indication: Uterine hypertonus
     Dosage: 1 TO 2 TIMES DAILY
     Dates: start: 20221124

REACTIONS (3)
  - Uterine haemorrhage [Unknown]
  - Maternal exposure during pregnancy [Unknown]
  - Contraindicated product administered [Unknown]

NARRATIVE: CASE EVENT DATE: 20220720
